FAERS Safety Report 7347706-2 (Version None)
Quarter: 2011Q1

REPORT INFORMATION
  Report Type: 
  Country: None (occurrence: None)
  Receive Date: 20110311
  Receipt Date: 20110303
  Transmission Date: 20110831
  Serious: Yes (Other)
  Sender: FDA-Public Use
  Company Number: B0703528A

PATIENT
  Age: 15 Year
  Sex: Female

DRUGS (2)
  1. ISOTRETINOIN [Concomitant]
     Indication: ACNE
     Route: 048
     Dates: end: 20101101
  2. DUAC [Suspect]
     Indication: ACNE
     Route: 061
     Dates: start: 20110218, end: 20110219

REACTIONS (2)
  - RASH [None]
  - SWELLING FACE [None]
